FAERS Safety Report 15148618 (Version 1)
Quarter: 2018Q3

REPORT INFORMATION
  Report Type: Report from Study
  Country: CA (occurrence: CA)
  Receive Date: 20180716
  Receipt Date: 20180716
  Transmission Date: 20181010
  Serious: Yes (Other)
  Sender: FDA-Public Use
  Company Number: CA-JNJFOC-20180715456

PATIENT
  Age: 58 Year
  Sex: Male
  Weight: 83 kg

DRUGS (1)
  1. REMICADE [Suspect]
     Active Substance: INFLIXIMAB
     Indication: CROHN^S DISEASE
     Dosage: STRENGTH = 100 MG
     Route: 042
     Dates: start: 20171127, end: 20180201

REACTIONS (3)
  - Intestinal resection [Recovering/Resolving]
  - Off label use [Unknown]
  - Product use issue [Unknown]

NARRATIVE: CASE EVENT DATE: 20171127
